FAERS Safety Report 4369656-6 (Version None)
Quarter: 2004Q2

REPORT INFORMATION
  Report Type: 
  Country: None (occurrence: None)
  Receive Date: 20040526
  Receipt Date: 20040318
  Transmission Date: 20050107
  Serious: Yes (Hospitalization)
  Sender: FDA-Public Use
  Company Number: USA040362471

PATIENT
  Age: 75 Year
  Sex: Male
  Weight: 74 kg

DRUGS (6)
  1. HUMULIN 70/30 [Suspect]
     Indication: DIABETES MELLITUS
     Dosage: 34 U/DAY
     Dates: start: 20030101
  2. ZYPREXA [Suspect]
     Indication: ANXIETY
     Dosage: 2.5 MG/1 DAY
     Dates: start: 20040217
  3. MARPLAN [Concomitant]
  4. FUROSEMIDE [Concomitant]
  5. ATENOLOL [Concomitant]
  6. NORVASC [Concomitant]

REACTIONS (3)
  - CONFUSIONAL STATE [None]
  - DELIRIUM [None]
  - HALLUCINATION, VISUAL [None]
